FAERS Safety Report 15969316 (Version 1)
Quarter: 2019Q1

REPORT INFORMATION
  Report Type: Spontaneous
  Country: CN (occurrence: CN)
  Receive Date: 20190215
  Receipt Date: 20190215
  Transmission Date: 20190418
  Serious: Yes (Other)
  Sender: FDA-Public Use
  Company Number: CN-ELI_LILLY_AND_COMPANY-CN201902003746

PATIENT
  Age: 78 Year
  Sex: Male
  Weight: 65 kg

DRUGS (9)
  1. CALCIUM FOLINATE [Concomitant]
     Active Substance: LEUCOVORIN CALCIUM
     Indication: COLON CANCER
     Dosage: 0.6 G, UNKNOWN
     Route: 042
     Dates: start: 20181106
  2. GLUCOSE INJECTION [Concomitant]
     Active Substance: DEXTROSE
     Indication: PRODUCT USED FOR UNKNOWN INDICATION
     Dosage: 250 ML, UNKNOWN
     Route: 042
     Dates: start: 20181106
  3. SODIUM CHLORIDE. [Concomitant]
     Active Substance: SODIUM CHLORIDE
     Indication: PRODUCT USED FOR UNKNOWN INDICATION
     Dosage: 650 ML, UNKNOWN
     Route: 042
     Dates: start: 20181106
  4. FLUOROURACIL. [Concomitant]
     Active Substance: FLUOROURACIL
     Indication: COLON CANCER
     Dosage: 0.6 G, 2/M
     Route: 042
     Dates: start: 20181106
  5. BEVACIZUMAB. [Concomitant]
     Active Substance: BEVACIZUMAB
     Indication: COLON CANCER
     Dosage: 300 MG, 2/M
     Route: 042
     Dates: start: 20181106
  6. FLUOROURACIL. [Concomitant]
     Active Substance: FLUOROURACIL
     Dosage: 3 G, 2/M
     Route: 042
     Dates: start: 20181106
  7. ELOXATIN [Concomitant]
     Active Substance: OXALIPLATIN
     Indication: COLON CANCER
     Dosage: 0.1 G, 2/M
     Route: 042
     Dates: start: 20181106
  8. ERBITUX [Suspect]
     Active Substance: CETUXIMAB
     Indication: COLON CANCER
     Dosage: 400 MG, OTHER
     Route: 042
     Dates: start: 20181106
  9. ERBITUX [Suspect]
     Active Substance: CETUXIMAB
     Dosage: 800 MG, OTHER
     Route: 042
     Dates: start: 20190114

REACTIONS (1)
  - Hyperpyrexia [Recovered/Resolved]

NARRATIVE: CASE EVENT DATE: 20190128
